FAERS Safety Report 20076375 (Version 1)
Quarter: 2021Q4

REPORT INFORMATION
  Report Type: Spontaneous
  Country: US (occurrence: None)
  Receive Date: 20211115
  Receipt Date: 20211115
  Transmission Date: 20220303
  Serious: No
  Sender: FDA-Public Use
  Company Number: None

PATIENT

DRUGS (2)
  1. NITROGLYCERIN [Suspect]
     Active Substance: NITROGLYCERIN
  2. NITROPRUSSIDE [Suspect]
     Active Substance: NITROPRUSSIDE

REACTIONS (3)
  - Product storage error [None]
  - Packaging design issue [None]
  - Device computer issue [None]
